FAERS Safety Report 25611337 (Version 1)
Quarter: 2025Q3

REPORT INFORMATION
  Report Type: Spontaneous
  Country: US (occurrence: US)
  Receive Date: 20250728
  Receipt Date: 20250728
  Transmission Date: 20251021
  Serious: Yes (Life-Threatening, Hospitalization, Other)
  Sender: AUROBINDO
  Company Number: US-MLMSERVICE-20250710-PI574775-00232-1

PATIENT
  Age: 44 Year
  Sex: Female

DRUGS (2)
  1. MYCOPHENOLIC ACID [Suspect]
     Active Substance: MYCOPHENOLIC ACID
     Indication: Immunosuppressant drug therapy
     Route: 065
  2. PREDNISONE [Suspect]
     Active Substance: PREDNISONE
     Indication: Goodpasture^s syndrome
     Dosage: 5 MILLIGRAM, ONCE A DAY
     Route: 065

REACTIONS (6)
  - Varicella zoster pneumonia [Recovering/Resolving]
  - Acute respiratory distress syndrome [Recovering/Resolving]
  - Disseminated varicella zoster virus infection [Recovering/Resolving]
  - Cytomegalovirus infection [Recovering/Resolving]
  - Blood beta-D-glucan increased [Recovering/Resolving]
  - Pseudomonas test positive [Recovering/Resolving]
